FAERS Safety Report 9552046 (Version 1)
Quarter: 2013Q3

REPORT INFORMATION
  Report Type: Report from Study
  Country: BR (occurrence: BR)
  Receive Date: 20130925
  Receipt Date: 20130925
  Transmission Date: 20140515
  Serious: Yes (Other)
  Sender: FDA-Public Use
  Company Number: PHHY2013BR105409

PATIENT
  Age: 65 Year
  Sex: Male

DRUGS (4)
  1. INDACATEROL [Suspect]
     Indication: CHRONIC OBSTRUCTIVE PULMONARY DISEASE
     Dosage: 150 UG, QD
     Dates: start: 201108
  2. GALVUS [Concomitant]
     Indication: TYPE 2 DIABETES MELLITUS
     Dosage: UNK UKN, UNK
  3. AZUKON [Concomitant]
     Indication: TYPE 2 DIABETES MELLITUS
     Dosage: UNK UKN, UNK
  4. TIOTROPIUM [Concomitant]
     Dosage: 5 UG, QD
     Dates: start: 20120927

REACTIONS (2)
  - Pharyngeal neoplasm [Unknown]
  - Emphysema [Unknown]
